FAERS Safety Report 7667832-8 (Version None)
Quarter: 2011Q3

REPORT INFORMATION
  Report Type: 
  Country: None (occurrence: None)
  Receive Date: 20110806
  Receipt Date: 20110412
  Transmission Date: 20111222
  Serious: No
  Sender: FDA-Public Use
  Company Number: US-ABBOTT-11P-163-0718341-00

PATIENT
  Sex: Male
  Weight: 110.32 kg

DRUGS (5)
  1. ZETIA [Concomitant]
     Indication: BLOOD CHOLESTEROL INCREASED
  2. ASPIRIN [Concomitant]
     Indication: CARDIAC DISORDER
     Dosage: ON HOLD THIS WEEK FOR A COLONOSCOPY
  3. NIASPAN [Suspect]
     Indication: BLOOD CHOLESTEROL INCREASED
     Dates: start: 20101001, end: 20110201
  4. WELCHOL [Concomitant]
     Indication: BLOOD CHOLESTEROL INCREASED
  5. NIASPAN [Suspect]
     Dates: start: 20110201

REACTIONS (2)
  - ERYTHEMA [None]
  - POOR QUALITY SLEEP [None]
